FAERS Safety Report 10966915 (Version 1)
Quarter: 2015Q1

REPORT INFORMATION
  Report Type: Report from Study
  Country: BR (occurrence: BR)
  Receive Date: 20150330
  Receipt Date: 20150330
  Transmission Date: 20150721
  Serious: Yes (Other)
  Sender: FDA-Public Use
  Company Number: ALCN2015BR001876

PATIENT
  Sex: Female

DRUGS (1)
  1. TRAVATAN [Suspect]
     Active Substance: TRAVOPROST
     Dosage: 1 GTT, QD
     Route: 047

REACTIONS (1)
  - Blindness unilateral [Not Recovered/Not Resolved]
